FAERS Safety Report 14609996 (Version 2)
Quarter: 2020Q2

REPORT INFORMATION
  Report Type: Spontaneous
  Country: NL (occurrence: NL)
  Receive Date: 20180307
  Receipt Date: 20200507
  Transmission Date: 20200713
  Serious: Yes (Hospitalization)
  Sender: FDA-Public Use
  Company Number: NL-B.I. PHARMACEUTICALS,INC./RIDGEFIELD-2018-12-000809

PATIENT
  Age: 68 Year
  Sex: Female

DRUGS (8)
  1. OCUVITE [Concomitant]
     Active Substance: VITAMINS
     Indication: PRODUCT USED FOR UNKNOWN INDICATION
     Route: 065
     Dates: start: 20170324
  2. RESCUVOLIN [Concomitant]
     Active Substance: LEUCOVORIN CALCIUM
     Indication: PRODUCT USED FOR UNKNOWN INDICATION
     Dosage: 1 X PER WEEK 0.5 TABLET
     Route: 065
     Dates: start: 20141014
  3. MOVICOX 15 MG TABLETS [Suspect]
     Active Substance: MELOXICAM
     Indication: RHEUMATIC DISORDER
     Dosage: 1 X DAAGS 1 TABLET
     Route: 065
     Dates: start: 20180116, end: 20180119
  4. CALCI BONE D3 [Concomitant]
     Active Substance: CALCIUM CARBONATE\CHOLECALCIFEROL
     Indication: PRODUCT USED FOR UNKNOWN INDICATION
     Dosage: 1 DD 1?FORM STRENGTH: 1000 MG/880IE
     Route: 065
     Dates: start: 20150219
  5. OMEPRAZOL [OMEPRAZOLE] [Concomitant]
     Active Substance: OMEPRAZOLE
     Indication: PRODUCT USED FOR UNKNOWN INDICATION
     Dosage: 1 DD 1
     Route: 065
     Dates: start: 20110530
  6. MYLAN BISOPROLOL [Concomitant]
     Indication: PRODUCT USED FOR UNKNOWN INDICATION
     Dosage: 1 DD 1
     Route: 065
     Dates: start: 20160108
  7. METHOTREXAAT [METHOTREXATE] [Interacting]
     Active Substance: METHOTREXATE
     Indication: PRODUCT USED FOR UNKNOWN INDICATION
     Dosage: 1 X PER WEEK 6 TABLETTEN
     Route: 065
     Dates: start: 20111019
  8. FRAGMIN [Concomitant]
     Active Substance: DALTEPARIN SODIUM
     Indication: PRODUCT USED FOR UNKNOWN INDICATION
     Dosage: 1 DD 0.2 ML?FORM STRENGTH: 5000 INJVLST
     Route: 065
     Dates: start: 20160704

REACTIONS (2)
  - Drug interaction [Recovered/Resolved]
  - Nephritis [Recovered/Resolved]

NARRATIVE: CASE EVENT DATE: 20180117
